FAERS Safety Report 7392830-1 (Version None)
Quarter: 2011Q2

REPORT INFORMATION
  Report Type: 
  Country: None (occurrence: None)
  Receive Date: 20110404
  Receipt Date: 20110330
  Transmission Date: 20111010
  Serious: Yes (Other)
  Sender: FDA-Public Use
  Company Number: IE-PFIZER INC-2011033006

PATIENT
  Age: 35 Year
  Sex: Male

DRUGS (1)
  1. CHAMPIX [Suspect]
     Indication: SMOKING CESSATION THERAPY
     Dosage: UNK, DESCRIBED AS RECOMMENDED DOSE

REACTIONS (3)
  - DEPRESSIVE SYMPTOM [None]
  - FEELING ABNORMAL [None]
  - MOOD ALTERED [None]
